FAERS Safety Report 22192718 (Version 1)
Quarter: 2023Q2

REPORT INFORMATION
  Report Type: Spontaneous
  Country: SA (occurrence: SA)
  Receive Date: 20230410
  Receipt Date: 20230410
  Transmission Date: 20230721
  Serious: Yes (Other)
  Sender: FDA-Public Use
  Company Number: SA-APIL-2310854US

PATIENT
  Sex: Male

DRUGS (1)
  1. BOTOX [Suspect]
     Active Substance: ONABOTULINUMTOXINA
     Indication: Strabismus
     Dosage: 10 UNITS, SINGLE
     Route: 031

REACTIONS (5)
  - Endophthalmitis [Unknown]
  - Retinal detachment [Unknown]
  - Blindness [Unknown]
  - Off label use [Unknown]
  - Incorrect route of product administration [Unknown]
